FAERS Safety Report 18796343 (Version 1)
Quarter: 2021Q1

REPORT INFORMATION
  Report Type: Spontaneous
  Country: IN (occurrence: IN)
  Receive Date: 20210127
  Receipt Date: 20210127
  Transmission Date: 20210419
  Serious: Yes (Other)
  Sender: FDA-Public Use
  Company Number: IN-FRESENIUS KABI-FK202100938

PATIENT
  Age: 25 Year
  Sex: Female
  Weight: 55 kg

DRUGS (1)
  1. ATROPINE (MANUFACTURER UNKNOWN) [Suspect]
     Active Substance: ATROPINE
     Indication: CHEMICAL POISONING
     Route: 042

REACTIONS (3)
  - Tachycardia [Recovered/Resolved]
  - Substance-induced psychotic disorder [Recovered/Resolved]
  - Vision blurred [Recovered/Resolved]
